FAERS Safety Report 16657694 (Version 9)
Quarter: 2019Q4

REPORT INFORMATION
  Report Type: Report from Study
  Country: US (occurrence: US)
  Receive Date: 20190801
  Receipt Date: 20191002
  Transmission Date: 20200122
  Serious: Yes (Life-Threatening, Hospitalization, Other)
  Sender: FDA-Public Use
  Company Number: PHEH2019US031742

PATIENT
  Age: 14 Year
  Sex: Male
  Weight: 75 kg

DRUGS (6)
  1. LETAIRIS [Concomitant]
     Active Substance: AMBRISENTAN
     Indication: PRODUCT USED FOR UNKNOWN INDICATION
     Route: 065
  2. TREPROSTINIL. [Suspect]
     Active Substance: TREPROSTINIL
     Indication: PULMONARY ARTERIAL HYPERTENSION
     Dosage: 30 NG/KG/MIN, CONTINUOUS
     Route: 042
     Dates: start: 20190726
  3. TREPROSTINIL. [Suspect]
     Active Substance: TREPROSTINIL
     Dosage: 32 NG/KG/MIN, CONTINUOUS
     Route: 042
     Dates: start: 20190829
  4. TREPROSTINIL. [Suspect]
     Active Substance: TREPROSTINIL
     Dosage: 26 NG/KG/MIN, CONTINUOUS
     Route: 042
  5. OXYGEN. [Concomitant]
     Active Substance: OXYGEN
     Dosage: 8 L, UNK
     Route: 065
  6. OXYGEN. [Concomitant]
     Active Substance: OXYGEN
     Indication: SUPPLEMENTATION THERAPY
     Dosage: 2 L, UNK
     Route: 065

REACTIONS (14)
  - Flushing [Unknown]
  - Dyspnoea exertional [Unknown]
  - Cardiac failure [Unknown]
  - Diarrhoea [Unknown]
  - Headache [Not Recovered/Not Resolved]
  - Infusion site pruritus [Unknown]
  - Pain [Unknown]
  - Cardiac arrest [Unknown]
  - Ventricular tachycardia [Unknown]
  - Rash [Unknown]
  - Pulmonary oedema [Unknown]
  - Vomiting [Unknown]
  - Nausea [Unknown]
  - Fatigue [Unknown]

NARRATIVE: CASE EVENT DATE: 20190820
